FAERS Safety Report 17918069 (Version 1)
Quarter: 2020Q2

REPORT INFORMATION
  Report Type: Spontaneous
  Country: US (occurrence: US)
  Receive Date: 20200619
  Receipt Date: 20200619
  Transmission Date: 20200714
  Serious: No
  Sender: FDA-Public Use
  Company Number: US-TEVA-2020-US-1789345

PATIENT
  Age: 7 Decade
  Sex: Female

DRUGS (4)
  1. ACITRETIN. [Suspect]
     Active Substance: ACITRETIN
     Indication: BENIGN FAMILIAL PEMPHIGUS
     Route: 065
  2. NALTREXONE [Suspect]
     Active Substance: NALTREXONE
     Indication: BENIGN FAMILIAL PEMPHIGUS
     Dosage: DOSE: 50 MG AT NIGHT
     Route: 065
  3. ACITRETIN. [Suspect]
     Active Substance: ACITRETIN
     Route: 065
  4. NALTREXONE [Suspect]
     Active Substance: NALTREXONE
     Route: 065

REACTIONS (1)
  - Therapeutic response decreased [Unknown]
